FAERS Safety Report 13017860 (Version 4)
Quarter: 2017Q1

REPORT INFORMATION
  Report Type: Spontaneous
  Country: US (occurrence: US)
  Receive Date: 20161212
  Receipt Date: 20170104
  Transmission Date: 20170428
  Serious: Yes (Life-Threatening, Other)
  Sender: FDA-Public Use
  Company Number: US-GLAXOSMITHKLINE-US2016182817

PATIENT
  Age: 62 Year
  Sex: Female
  Weight: 53.52 kg

DRUGS (2)
  1. ADVAIR DISKUS [Suspect]
     Active Substance: FLUTICASONE PROPIONATE\SALMETEROL XINAFOATE
     Indication: ASTHMA
     Dosage: 1 PUFF(S), BID
     Route: 055
     Dates: start: 20161207, end: 20161208
  2. ALBUTEROL. [Concomitant]
     Active Substance: ALBUTEROL

REACTIONS (8)
  - Adverse reaction [Unknown]
  - Cough [Unknown]
  - Insomnia [Unknown]
  - Apparent death [Unknown]
  - Dyspnoea [Not Recovered/Not Resolved]
  - Bronchospasm [Not Recovered/Not Resolved]
  - Ill-defined disorder [Unknown]
  - Drug ineffective [Unknown]

NARRATIVE: CASE EVENT DATE: 20161207
